FAERS Safety Report 24891628 (Version 1)
Quarter: 2025Q1

REPORT INFORMATION
  Report Type: Spontaneous
  Country: US (occurrence: US)
  Receive Date: 20250127
  Receipt Date: 20250127
  Transmission Date: 20250408
  Serious: Yes (Hospitalization, Other)
  Sender: NOVARTIS
  Company Number: US-SANDOZ-SDZ2025US003089

PATIENT
  Age: 56 Year
  Sex: Male

DRUGS (24)
  1. VORICONAZOLE [Suspect]
     Active Substance: VORICONAZOLE
     Indication: Product used for unknown indication
     Route: 065
  2. AZITHROMYCIN [Suspect]
     Active Substance: AZITHROMYCIN
     Indication: Product used for unknown indication
     Dosage: 500 MG, QD
     Route: 048
  3. CLARITHROMYCIN [Suspect]
     Active Substance: CLARITHROMYCIN
     Indication: Product used for unknown indication
     Route: 065
  4. PANTOPRAZOLE SODIUM [Suspect]
     Active Substance: PANTOPRAZOLE SODIUM
     Indication: Product used for unknown indication
     Dosage: 40 MG, Q12H (40MG IVP Q24H)
     Route: 042
  5. IMIPENEM AND CILASTATIN [Suspect]
     Active Substance: CILASTATIN SODIUM\IMIPENEM
     Indication: Product used for unknown indication
     Dosage: 250 MG, Q12H
     Route: 042
  6. MYFORTIC [Suspect]
     Active Substance: MYCOPHENOLATE SODIUM
     Indication: Product used for unknown indication
     Dosage: 720 MG, QD (360MG BY MOUTH BID)
     Route: 048
  7. IMIPENEM [Suspect]
     Active Substance: IMIPENEM
     Indication: Product used for unknown indication
     Route: 065
  8. IMIPENEM [Suspect]
     Active Substance: IMIPENEM
     Dosage: 250 MG, Q12H
     Route: 042
  9. ZYVOX [Suspect]
     Active Substance: LINEZOLID
     Indication: Product used for unknown indication
     Dosage: 600 MG, Q24H, (600 MG DAILY)
     Route: 048
  10. ZYVOX [Suspect]
     Active Substance: LINEZOLID
     Route: 065
     Dates: start: 20241204
  11. AMIKACIN [Suspect]
     Active Substance: AMIKACIN
     Indication: Product used for unknown indication
     Route: 042
     Dates: start: 20241113, end: 20241203
  12. ZOVIRAX [Suspect]
     Active Substance: ACYCLOVIR
     Indication: Product used for unknown indication
     Dosage: 400 MG, QD (200 MG, BID)
     Route: 048
  13. LIPITOR [Suspect]
     Active Substance: ATORVASTATIN CALCIUM
     Indication: Product used for unknown indication
     Dosage: 20 MG, QD(20MG BY MOUTH ATBEDTIME)
     Route: 048
  14. HEPARIN [Suspect]
     Active Substance: HEPARIN SODIUM
     Indication: Product used for unknown indication
     Dosage: UNK UNK, QD (5,000UNIT(S) SUBQ TID, TID)
     Route: 065
  15. MAGNESIUM OXIDE [Suspect]
     Active Substance: MAGNESIUM OXIDE
     Indication: Product used for unknown indication
     Route: 048
  16. METOPROLOL TARTRATE [Suspect]
     Active Substance: METOPROLOL TARTRATE
     Indication: Product used for unknown indication
     Dosage: 25 MG, QD ((METOPROLOL -TARTRATE IMMEDIATE RELEASE) 12.5MG BY MOUTH BID)
     Route: 048
  17. REMERON [Suspect]
     Active Substance: MIRTAZAPINE
     Indication: Product used for unknown indication
     Dosage: 15 MG, QD (15MG BY MOUTH ATBEDTIME)
     Route: 048
  18. VITAMINS [Suspect]
     Active Substance: VITAMINS
     Indication: Product used for unknown indication
     Route: 048
  19. PREDNISONE [Suspect]
     Active Substance: PREDNISONE
     Indication: Product used for unknown indication
     Route: 048
  20. SULFAMETHOXAZOLE AND TRIMETHOPRIM [Suspect]
     Active Substance: SULFAMETHOXAZOLE\TRIMETHOPRIM
     Indication: Product used for unknown indication
     Route: 048
  21. PROGRAF [Suspect]
     Active Substance: TACROLIMUS
     Indication: Product used for unknown indication
     Dosage: 8 MG, QD (4MG BY MOUTH BID)
     Route: 048
  22. TYLENOL [Concomitant]
     Active Substance: ACETAMINOPHEN
     Indication: Product used for unknown indication
     Dosage: 650 MG, Q6H (650MG BY MOUTH Q6H)
     Route: 048
  23. BENADRYL [Concomitant]
     Active Substance: DIPHENHYDRAMINE HYDROCHLORIDE
     Indication: Product used for unknown indication
     Dosage: 50 MG, Q6H (50MG BY MOUTH Q6H)
     Route: 048
  24. ZOFRAN [Concomitant]
     Active Substance: ONDANSETRON HYDROCHLORIDE
     Indication: Product used for unknown indication
     Dosage: 4 MG, Q8H (4MG BY MOUTH Q8H)
     Route: 048

REACTIONS (17)
  - Weight decreased [Unknown]
  - Pain in extremity [Unknown]
  - Asthenia [Unknown]
  - Malaise [Unknown]
  - Pulmonary mass [Unknown]
  - Duodenal ulcer [Unknown]
  - Gastrointestinal haemorrhage [Unknown]
  - Seroma [Unknown]
  - Anal incontinence [Unknown]
  - Arteriovenous graft site complication [Unknown]
  - Oedema [Unknown]
  - Dyspnoea [Unknown]
  - Diarrhoea [Unknown]
  - Fatigue [Unknown]
  - Vomiting [Recovering/Resolving]
  - Nausea [Recovering/Resolving]
  - Anaemia [Unknown]
